FAERS Safety Report 6233790-6 (Version None)
Quarter: 2009Q2

REPORT INFORMATION
  Report Type: 
  Country: None (occurrence: None)
  Receive Date: 20090618
  Receipt Date: 20090615
  Transmission Date: 20091009
  Serious: Yes (Other)
  Sender: FDA-Public Use
  Company Number: US-RANBAXY-2009US-24192

PATIENT

DRUGS (1)
  1. CETIRIZINE [Suspect]
     Indication: HYPERSENSITIVITY
     Dosage: 10 MG, UNK
     Route: 048
     Dates: start: 20090518

REACTIONS (2)
  - DYSPNOEA [None]
  - PHARYNGEAL OEDEMA [None]
